FAERS Safety Report 5262168-7 (Version None)
Quarter: 2007Q1

REPORT INFORMATION
  Report Type: 
  Country: None (occurrence: None)
  Receive Date: 20070311
  Receipt Date: 20070228
  Transmission Date: 20070707
  Serious: Yes (Hospitalization)
  Sender: FDA-Public Use
  Company Number: 2006UW01649

PATIENT
  Age: 18848 Day
  Sex: Female
  Weight: 109.5 kg

DRUGS (5)
  1. SEROQUEL [Suspect]
     Indication: DEPRESSION
     Route: 048
     Dates: start: 20030307, end: 20060331
  2. SEROQUEL [Suspect]
     Indication: BIPOLAR DISORDER
     Route: 048
     Dates: start: 20030307, end: 20060331
  3. ABILIFY [Concomitant]
     Dates: start: 20060328
  4. CLOZARIL [Concomitant]
  5. GEODON [Concomitant]
     Dates: start: 20030521, end: 20060119

REACTIONS (7)
  - ASTHMA [None]
  - BRONCHITIS [None]
  - CHRONIC OBSTRUCTIVE PULMONARY DISEASE [None]
  - DIABETES MELLITUS NON-INSULIN-DEPENDENT [None]
  - DYSPNOEA [None]
  - EMPHYSEMA [None]
  - HYPERGLYCAEMIA [None]
